FAERS Safety Report 15279578 (Version 7)
Quarter: 2019Q2

REPORT INFORMATION
  Report Type: Spontaneous
  Country: US (occurrence: US)
  Receive Date: 20180815
  Receipt Date: 20190426
  Transmission Date: 20190711
  Serious: Yes (Hospitalization)
  Sender: FDA-Public Use
  Company Number: US-PFIZER INC-2018325572

PATIENT
  Age: 82 Year
  Sex: Female

DRUGS (2)
  1. XELJANZ XR [Suspect]
     Active Substance: TOFACITINIB CITRATE
     Dosage: 11 MG, 1X/DAY
     Route: 048
     Dates: start: 201807
  2. XELJANZ XR [Suspect]
     Active Substance: TOFACITINIB CITRATE
     Indication: RHEUMATOID ARTHRITIS
     Dosage: 11 MG, UNK
     Route: 048

REACTIONS (6)
  - Pain [Unknown]
  - Herpes zoster [Recovered/Resolved]
  - Acne [Unknown]
  - Malaise [Unknown]
  - Rash macular [Recovered/Resolved]
  - Respiration abnormal [Unknown]

NARRATIVE: CASE EVENT DATE: 20181023
